FAERS Safety Report 9331156 (Version 1)
Quarter: 2013Q2

REPORT INFORMATION
  Report Type: Spontaneous
  Country: ES (occurrence: ES)
  Receive Date: 20130605
  Receipt Date: 20130605
  Transmission Date: 20140414
  Serious: Yes (Other)
  Sender: FDA-Public Use
  Company Number: PHHY2013ES055566

PATIENT
  Age: 4 Year
  Sex: Male

DRUGS (1)
  1. CLARITHROMYCIN [Suspect]
     Indication: PHARYNGITIS

REACTIONS (2)
  - Aggression [Recovered/Resolved]
  - Irritability [Recovered/Resolved]
